FAERS Safety Report 4720929-4 (Version None)
Quarter: 2005Q3

REPORT INFORMATION
  Report Type: 
  Country: None (occurrence: None)
  Receive Date: 20050719
  Receipt Date: 20050121
  Transmission Date: 20060218
  Serious: Yes (Hospitalization, Other)
  Sender: FDA-Public Use
  Company Number: 2005018450

PATIENT
  Age: 85 Year
  Sex: Male

DRUGS (1)
  1. CELEBREX [Suspect]
     Indication: ARTHRITIS
     Dosage: UNKNOWN (UNKNOWN), ORAL
     Route: 048
     Dates: end: 20040101

REACTIONS (1)
  - GASTRIC HAEMORRHAGE [None]
